FAERS Safety Report 5458644-4 (Version None)
Quarter: 2007Q3

REPORT INFORMATION
  Report Type: 
  Country: None (occurrence: None)
  Receive Date: 20070919
  Receipt Date: 20070911
  Transmission Date: 20080115
  Serious: Yes (Hospitalization)
  Sender: FDA-Public Use
  Company Number: IE-BRISTOL-MYERS SQUIBB COMPANY-13011010

PATIENT
  Age: 63 Year
  Sex: Female

DRUGS (6)
  1. CETUXIMAB [Suspect]
     Indication: NON-SMALL CELL LUNG CANCER
     Route: 041
     Dates: start: 20050609, end: 20050609
  2. CISPLATIN [Suspect]
     Indication: NON-SMALL CELL LUNG CANCER
     Route: 042
     Dates: start: 20050526, end: 20050526
  3. VINORELBINE [Suspect]
     Indication: NON-SMALL CELL LUNG CANCER
     Route: 042
     Dates: start: 20050602, end: 20050602
  4. AUGMENTIN '125' [Concomitant]
  5. POTASSIUM CHLORIDE [Concomitant]
  6. AMOXICILLIN [Concomitant]

REACTIONS (2)
  - CELLULITIS [None]
  - STOMATITIS [None]
